FAERS Safety Report 25061504 (Version 1)
Quarter: 2025Q1

REPORT INFORMATION
  Report Type: Other
  Country: GB (occurrence: GB)
  Receive Date: 20250311
  Receipt Date: 20250311
  Transmission Date: 20250408
  Serious: Yes (Other)
  Sender: GLENMARK
  Company Number: GB-MHRA-TPP13589652C23861774YC1740568445530

PATIENT
  Age: 50 Year
  Sex: Female
  Weight: 97 kg

DRUGS (5)
  1. GABAPENTIN [Suspect]
     Active Substance: GABAPENTIN
     Indication: Ill-defined disorder
     Dosage: 2 DOSAGE FORM, BID (TAKE TWO 2 TIMES DAILY)
     Route: 065
     Dates: start: 20231113
  2. MIRTAZAPINE [Concomitant]
     Active Substance: MIRTAZAPINE
     Indication: Ill-defined disorder
     Dosage: UNK UNK, QD (TAKE ONE AT NIGHT)
     Route: 065
     Dates: start: 20240111, end: 20250226
  3. LANSOPRAZOLE [Concomitant]
     Active Substance: LANSOPRAZOLE
     Indication: Ill-defined disorder
     Dosage: UNK, OD, TAKE ONE- TWO ONCE DAILY
     Route: 065
     Dates: start: 20241022
  4. ESTRADIOL [Concomitant]
     Active Substance: ESTRADIOL
     Indication: Ill-defined disorder
     Dosage: OD, APPLY 1-2 MEASURES ONCE DAILY
     Route: 065
     Dates: start: 20241022
  5. PROGESTERONE [Concomitant]
     Active Substance: PROGESTERONE
     Indication: Ill-defined disorder
     Route: 065
     Dates: start: 20241022

REACTIONS (3)
  - Brain fog [Recovered/Resolved]
  - Fatigue [Recovered/Resolved]
  - Rash [Recovered/Resolved]
